FAERS Safety Report 4623590-2 (Version None)
Quarter: 2005Q2

REPORT INFORMATION
  Report Type: 
  Country: None (occurrence: None)
  Receive Date: 20050325
  Receipt Date: 20050118
  Transmission Date: 20051028
  Serious: No
  Sender: FDA-Public Use
  Company Number: USA041080291

PATIENT
  Age: 80 Year
  Sex: Female
  Weight: 64 kg

DRUGS (11)
  1. FORTEO [Suspect]
     Indication: OSTEOPOROSIS
     Dosage: 20 MG DAY
     Dates: start: 20040901
  2. DARVOCET-N 100 [Concomitant]
  3. PLAVIX [Concomitant]
  4. ZOCOR (SIMVASTATIN RATIOPHARM) [Concomitant]
  5. AVAPRO [Concomitant]
  6. ASPIRIN [Concomitant]
  7. OSCAL (CALCIUM CARBONATE) [Concomitant]
  8. CENTRUM [Concomitant]
  9. MIACALCIN [Concomitant]
  10. FOSAMAX [Concomitant]
  11. ALLEGRA [Concomitant]

REACTIONS (8)
  - ASTHENIA [None]
  - CONTUSION [None]
  - HYPOAESTHESIA [None]
  - INJECTION SITE HAEMORRHAGE [None]
  - MUSCLE SPASMS [None]
  - NEUROPATHY PERIPHERAL [None]
  - PULSE PRESSURE DECREASED [None]
  - ROAD TRAFFIC ACCIDENT [None]
